FAERS Safety Report 6247748-4 (Version None)
Quarter: 2009Q2

REPORT INFORMATION
  Report Type: 
  Country: None (occurrence: None)
  Receive Date: 20090626
  Receipt Date: 20090624
  Transmission Date: 20091009
  Serious: Yes (Hospitalization)
  Sender: FDA-Public Use
  Company Number: US-AMGEN-US342311

PATIENT
  Sex: Male
  Weight: 101.2 kg

DRUGS (14)
  1. NPLATE [Suspect]
     Indication: IDIOPATHIC THROMBOCYTOPENIC PURPURA
     Route: 065
     Dates: start: 20090313
  2. ZITHROMAX [Concomitant]
     Route: 065
  3. SYNTHROID [Concomitant]
     Route: 065
  4. NEXIUM [Concomitant]
     Route: 065
  5. BUMEX [Concomitant]
     Route: 065
  6. NORVASC [Concomitant]
     Route: 065
  7. LANTUS [Concomitant]
     Route: 058
  8. NOVOLOG [Concomitant]
     Route: 065
  9. MAGNESIUM SULFATE [Concomitant]
     Route: 065
  10. PROGRAF [Concomitant]
     Route: 065
  11. CELLCEPT [Concomitant]
     Route: 065
  12. PREDNISONE TAB [Concomitant]
     Route: 065
     Dates: start: 20081215
  13. LISINOPRIL [Concomitant]
     Route: 065
  14. INDERAL LA [Concomitant]
     Route: 065

REACTIONS (2)
  - DIVERTICULITIS [None]
  - PROCTALGIA [None]
